FAERS Safety Report 8100698-0 (Version None)
Quarter: 2012Q1

REPORT INFORMATION
  Report Type: 
  Country: None (occurrence: None)
  Receive Date: 20120129
  Receipt Date: 20111106
  Transmission Date: 20120608
  Serious: No
  Sender: FDA-Public Use
  Company Number: US-ABBOTT-11P-163-0707461-00

PATIENT
  Sex: Male

DRUGS (24)
  1. LISINOPRIL [Concomitant]
     Indication: HYPERTENSION
  2. HUMIRA [Suspect]
     Indication: RHEUMATOID ARTHRITIS
     Dates: start: 20110130
  3. TRAZODONE HCL [Concomitant]
     Indication: INSOMNIA
     Dosage: 3-4 HS SLEEP
  4. TRAMADOL HCL [Concomitant]
     Indication: PAIN
  5. ADDERALL 5 [Concomitant]
     Indication: ATTENTION DEFICIT/HYPERACTIVITY DISORDER
  6. FLOMAX [Concomitant]
     Indication: PRODUCT USED FOR UNKNOWN INDICATION
     Dosage: Q AM
  7. MIRTAZAPINE [Concomitant]
     Indication: DEPRESSION
     Dosage: AT BEDTIME
  8. TAMSULOSIN HCL [Concomitant]
     Indication: URINARY RETENTION
  9. LIOTHYRONINE SODIUM [Concomitant]
     Indication: HYPOTHYROIDISM
  10. METHOTREXATE [Concomitant]
     Indication: RHEUMATOID ARTHRITIS
     Dates: start: 20100101
  11. TEMAZEPAM [Concomitant]
     Indication: INSOMNIA
  12. ASPIRIN [Concomitant]
     Indication: PRODUCT USED FOR UNKNOWN INDICATION
  13. PREDNISONE TAB [Concomitant]
     Indication: PRODUCT USED FOR UNKNOWN INDICATION
  14. FIBERCON [Concomitant]
     Indication: CONSTIPATION
  15. LEVOTHYROXINE SODIUM [Concomitant]
     Indication: HYPOTHYROIDISM
  16. MULTI-VITAMINS [Concomitant]
     Indication: VITAMIN SUPPLEMENTATION
     Dosage: Q AM
  17. PRILOSEC [Concomitant]
     Indication: DYSPEPSIA
  18. VITAMIN B COMPLEX CAP [Concomitant]
     Indication: PRODUCT USED FOR UNKNOWN INDICATION
     Dosage: DAILY
  19. FOLIC ACID [Concomitant]
     Indication: VITAMIN SUPPLEMENTATION
  20. MIRTAZAPINE [Concomitant]
     Indication: INSOMNIA
  21. VITAMIN D [Concomitant]
     Indication: VITAMIN SUPPLEMENTATION
  22. HUMIRA [Suspect]
     Indication: OSTEOARTHRITIS
  23. LEFLUNOMIDE [Concomitant]
     Indication: RHEUMATOID ARTHRITIS
  24. ACETAMINOPHEN AND HYDROCODONE BITARTRATE [Concomitant]
     Indication: ARTHRALGIA

REACTIONS (5)
  - FATIGUE [None]
  - RHEUMATOID ARTHRITIS [None]
  - DRUG EFFECT DECREASED [None]
  - NAUSEA [None]
  - ARTHRALGIA [None]
